FAERS Safety Report 6539860-7 (Version None)
Quarter: 2010Q1

REPORT INFORMATION
  Report Type: 
  Country: None (occurrence: None)
  Receive Date: 20100115
  Receipt Date: 20100104
  Transmission Date: 20100710
  Serious: Yes (Disabling, Other)
  Sender: FDA-Public Use
  Company Number: GB-WATSON-2010-00073

PATIENT
  Age: 62 Year
  Sex: Female

DRUGS (2)
  1. METHYLPREDNISOLONE ACETATE [Suspect]
     Indication: RHEUMATOID ARTHRITIS
     Dosage: 40 MG, SINGLE
     Route: 030
  2. CIPROFLOXACIN HCL [Suspect]
     Indication: LOWER RESPIRATORY TRACT INFECTION
     Dosage: 500 MG, BID
     Route: 065

REACTIONS (1)
  - TENDON RUPTURE [None]
